FAERS Safety Report 9029102 (Version 2)
Quarter: 2013Q2

REPORT INFORMATION
  Report Type: Spontaneous
  Country: FR (occurrence: FR)
  Receive Date: 20130122
  Receipt Date: 20130517
  Transmission Date: 20140414
  Serious: Yes (Hospitalization)
  Sender: FDA-Public Use
  Company Number: FR-PFIZER INC-2013021929

PATIENT
  Age: 69 Year
  Sex: Male

DRUGS (1)
  1. ATORVASTATINE PFIZER [Suspect]
     Dosage: UNK

REACTIONS (1)
  - Polyneuropathy [Unknown]
